FAERS Safety Report 5514346-7 (Version None)
Quarter: 2007Q4

REPORT INFORMATION
  Report Type: 
  Country: None (occurrence: None)
  Receive Date: 20071113
  Receipt Date: 20070419
  Transmission Date: 20080405
  Serious: No
  Sender: FDA-Public Use
  Company Number: A0647998A

PATIENT
  Sex: Male

DRUGS (6)
  1. COREG [Suspect]
     Dosage: 25MG TWICE PER DAY
     Route: 048
     Dates: start: 20030501
  2. ASPIRIN [Concomitant]
  3. TRICOR [Concomitant]
  4. ZETIA [Concomitant]
  5. CRESTOR [Concomitant]
  6. COZAAR [Concomitant]

REACTIONS (2)
  - DYSPEPSIA [None]
  - ORTHOSTATIC HYPOTENSION [None]
